FAERS Safety Report 18839727 (Version 1)
Quarter: 2021Q1

REPORT INFORMATION
  Report Type: Report from Study
  Country: US (occurrence: US)
  Receive Date: 20210204
  Receipt Date: 20210204
  Transmission Date: 20210419
  Serious: No
  Sender: FDA-Public Use
  Company Number: US-EXELIXIS-CABO-20034983

PATIENT
  Age: 63 Year
  Sex: Male

DRUGS (1)
  1. CABOMETYX [Suspect]
     Active Substance: CABOZANTINIB S-MALATE
     Indication: RENAL CANCER
     Dosage: 60 MG, QD
     Route: 048
     Dates: start: 20201027

REACTIONS (8)
  - Gingivitis [Unknown]
  - Glossodynia [Unknown]
  - Rash [Unknown]
  - Pain in jaw [Unknown]
  - Dry mouth [Unknown]
  - Pruritus [Unknown]
  - Blood pressure decreased [Unknown]
  - Oral pain [Unknown]

NARRATIVE: CASE EVENT DATE: 202011
